FAERS Safety Report 17264009 (Version 1)
Quarter: 2020Q1

REPORT INFORMATION
  Report Type: Spontaneous
  Country: CA (occurrence: CA)
  Receive Date: 20200113
  Receipt Date: 20200113
  Transmission Date: 20200409
  Serious: Yes (Death, Other)
  Sender: FDA-Public Use
  Company Number: CA-TEVA-2020-CA-1166945

PATIENT
  Age: 29 Year
  Sex: Male

DRUGS (1)
  1. MORPHINE SULFATE. [Suspect]
     Active Substance: MORPHINE SULFATE
     Indication: BACK PAIN
     Route: 065

REACTIONS (2)
  - Overdose [Fatal]
  - Drug dependence [Fatal]
